FAERS Safety Report 15796318 (Version 3)
Quarter: 2022Q2

REPORT INFORMATION
  Report Type: Report from Study
  Country: GB (occurrence: GB)
  Receive Date: 20190108
  Receipt Date: 20220408
  Transmission Date: 20220721
  Serious: Yes (Hospitalization)
  Sender: FDA-Public Use
  Company Number: GB-EMA-DD-20181217-KUMARVN_P-105829

PATIENT
  Age: 43 Year
  Sex: Female
  Weight: 80.6 kg

DRUGS (38)
  1. PACLITAXEL [Suspect]
     Active Substance: PACLITAXEL
     Indication: Breast cancer metastatic
     Dosage: MOST RECENT DOSE RECEIVED ON 22/05/2015 , INFUSION , UNIT DOSE : 192.5 MG
     Route: 042
     Dates: start: 20150226, end: 20150522
  2. PERTUZUMAB [Suspect]
     Active Substance: PERTUZUMAB
     Indication: Breast cancer metastatic
     Dosage: 840 MG, TIW
     Route: 042
     Dates: start: 20150226
  3. PERTUZUMAB [Suspect]
     Active Substance: PERTUZUMAB
     Route: 042
     Dates: end: 20150508
  4. PERTUZUMAB [Suspect]
     Active Substance: PERTUZUMAB
     Dosage: 420 MG, QW (SHE RECEIVED MOST RECENT DOSE OF PERTUZUMAB), THERAPY END DATE: ASKU
     Route: 042
     Dates: start: 20150508
  5. TRASTUZUMAB [Suspect]
     Active Substance: TRASTUZUMAB
     Indication: Breast cancer metastatic
     Dosage: 600 MG, TIW (ON 08/MAY/2015, MOST RECENT DOSE)
     Route: 058
     Dates: start: 20150226, end: 20150508
  6. ADO-TRASTUZUMAB EMTANSINE [Suspect]
     Active Substance: ADO-TRASTUZUMAB EMTANSINE
     Indication: Breast cancer metastatic
     Dosage: 06/AUG/2015, SHE RECEIVED MOST RECENT DOSE OF TRASTUZUMAB EMTANSINE
     Route: 042
     Dates: start: 20150604, end: 20150806
  7. HYALURONIDASE (HUMAN RECOMBINANT) [Suspect]
     Active Substance: HYALURONIDASE (HUMAN RECOMBINANT)
     Indication: Breast cancer metastatic
     Dosage: ON 08/MAY/2015, MOST RECENT DOSE , UNIT DOSE : 600 MG
     Route: 058
     Dates: start: 20150226, end: 20150508
  8. OXYGEN [Concomitant]
     Active Substance: OXYGEN
     Dosage: INHALANT
     Route: 065
     Dates: start: 201502
  9. OXYGEN [Concomitant]
     Active Substance: OXYGEN
     Dosage: 8 L, UNK (INHALANT)
     Route: 055
     Dates: start: 20150410
  10. SENNA [Concomitant]
     Active Substance: SENNA LEAF\SENNOSIDES\SENNOSIDES A AND B
     Dosage: 7.5 MG
     Route: 048
     Dates: start: 201504
  11. DEXAMETHASONE [Concomitant]
     Active Substance: DEXAMETHASONE
     Indication: Confusional state
     Route: 048
     Dates: start: 201502, end: 20150823
  12. ONDANSETRON [Concomitant]
     Active Substance: ONDANSETRON
     Indication: Product used for unknown indication
     Dosage: 8 MBQ, BID
     Route: 048
     Dates: start: 20150226, end: 20150424
  13. ONDANSETRON [Concomitant]
     Active Substance: ONDANSETRON
     Dosage: 48 MG
     Route: 065
     Dates: start: 201502
  14. ONDANSETRON [Concomitant]
     Active Substance: ONDANSETRON
     Dosage: 16 MBQ DAILY;
     Route: 048
     Dates: start: 20150226, end: 20150424
  15. ACETAMINOPHEN [Concomitant]
     Active Substance: ACETAMINOPHEN
     Indication: Headache
     Dosage: 2000 MG
     Route: 048
     Dates: start: 201502
  16. ACETAMINOPHEN [Concomitant]
     Active Substance: ACETAMINOPHEN
     Dosage: 1 G, 4X/DAY, FREQUENCY TIME-1 DAY, UNIT DOSE- 4 G
     Route: 048
     Dates: start: 20150823, end: 20150825
  17. METOCLOPRAMIDE [Concomitant]
     Active Substance: METOCLOPRAMIDE
     Indication: Product used for unknown indication
     Dosage: 30 MILLIGRAM DAILY;
     Route: 048
     Dates: start: 20150226, end: 201508
  18. METOCLOPRAMIDE [Concomitant]
     Active Substance: METOCLOPRAMIDE
     Dosage: 10 MG, TID
     Route: 048
     Dates: start: 20150226, end: 201508
  19. TRAMADOL [Concomitant]
     Active Substance: TRAMADOL
     Route: 048
     Dates: start: 201502
  20. CHLORPHENIRAMINE MALEATE [Concomitant]
     Active Substance: CHLORPHENIRAMINE MALEATE
     Dosage: ONCE
     Route: 042
     Dates: start: 20150226, end: 20150806
  21. HYDROCORTISONE [Concomitant]
     Active Substance: HYDROCORTISONE
     Dosage: ONCE
     Route: 042
     Dates: start: 20150226, end: 20150806
  22. DOXYCYCLINE [Concomitant]
     Active Substance: DOXYCYCLINE
     Indication: Malaise
     Route: 048
     Dates: start: 20150603, end: 20150608
  23. DOXYCYCLINE [Concomitant]
     Active Substance: DOXYCYCLINE
     Dosage: 1 DOSAGE FORMS DAILY;
     Dates: start: 201505
  24. LACTULOSE [Concomitant]
     Active Substance: LACTULOSE
     Dosage: 15 ML
     Route: 048
     Dates: start: 20150127, end: 20150801
  25. LORAZEPAM [Concomitant]
     Active Substance: LORAZEPAM
     Dosage: 1 MG
     Dates: start: 201502
  26. DALTEPARIN [Concomitant]
     Active Substance: DALTEPARIN
     Dosage: 15000 UNIT
     Route: 058
     Dates: start: 201504
  27. BISOPROLOL [Concomitant]
     Active Substance: BISOPROLOL
     Indication: Product used for unknown indication
     Dosage: 5 MILLIGRAM DAILY;
     Route: 048
     Dates: start: 20150811, end: 20150812
  28. BISOPROLOL [Concomitant]
     Active Substance: BISOPROLOL
     Dosage: 10 MG
     Route: 065
     Dates: start: 201504, end: 20150810
  29. BISOPROLOL [Concomitant]
     Active Substance: BISOPROLOL
     Dosage: 5 MILLIGRAM DAILY; 5 MG
     Route: 048
     Dates: start: 20150815
  30. BISOPROLOL [Concomitant]
     Active Substance: BISOPROLOL
     Route: 065
     Dates: start: 201504, end: 20150810
  31. ZOPICLONE [Concomitant]
     Active Substance: ZOPICLONE
     Dosage: 3.75 MG
     Route: 048
     Dates: start: 201502
  32. MORPHINE SULFATE [Concomitant]
     Active Substance: MORPHINE SULFATE
     Dosage: 5 ML
     Route: 048
     Dates: start: 201502
  33. ADENOSINE [Concomitant]
     Active Substance: ADENOSINE
     Route: 042
     Dates: start: 20150808, end: 20150808
  34. ALBUTEROL [Concomitant]
     Active Substance: ALBUTEROL
     Indication: Malaise
     Dosage: INHALATION
     Route: 055
     Dates: start: 20150602
  35. ALBUTEROL [Concomitant]
     Active Substance: ALBUTEROL
     Dosage: NEBULIZED , UNIT DOSE : 2.5 MG
     Dates: start: 201504
  36. DEXAMETHASONE [Concomitant]
     Active Substance: DEXAMETHASONE
     Indication: Confusional state
     Route: 042
     Dates: start: 20150823, end: 20150823
  37. DEXAMETHASONE [Concomitant]
     Active Substance: DEXAMETHASONE
     Dosage: 1 DOSAGE FORMS DAILY; UNK UNK, 1X/DAY
     Route: 048
     Dates: start: 201502, end: 20150823
  38. GRANISETRON [Concomitant]
     Active Substance: GRANISETRON
     Dosage: ONCE
     Route: 042
     Dates: start: 20150226, end: 20150806

REACTIONS (18)
  - Malaise [Not Recovered/Not Resolved]
  - Pneumonia [Not Recovered/Not Resolved]
  - Confusional state [Not Recovered/Not Resolved]
  - Dyspnoea [Not Recovered/Not Resolved]
  - Lower respiratory tract infection [Recovered/Resolved with Sequelae]
  - Sepsis [Recovered/Resolved with Sequelae]
  - Supraventricular tachycardia [Recovered/Resolved with Sequelae]
  - Dizziness [Not Recovered/Not Resolved]
  - Nausea [Recovered/Resolved]
  - Incontinence [Not Recovered/Not Resolved]
  - Tachycardia [Recovered/Resolved with Sequelae]
  - Nausea [Recovered/Resolved]
  - Dyspepsia [Not Recovered/Not Resolved]
  - Headache [Not Recovered/Not Resolved]
  - Dry mouth [Not Recovered/Not Resolved]
  - Rash [Not Recovered/Not Resolved]
  - Depressed mood [Not Recovered/Not Resolved]
  - Vomiting [Unknown]

NARRATIVE: CASE EVENT DATE: 20150502
